FAERS Safety Report 15347480 (Version 1)
Quarter: 2018Q3

REPORT INFORMATION
  Report Type: Spontaneous
  Country: US (occurrence: US)
  Receive Date: 20180829
  Receipt Date: 20180829
  Transmission Date: 20181010
  Serious: Yes (Hospitalization, Disabling)
  Sender: FDA-Public Use
  Company Number: None

PATIENT
  Age: 44 Year
  Sex: Male
  Weight: 110.25 kg

DRUGS (7)
  1. ONE?A?DAY NOS [Concomitant]
     Active Substance: MINERALS\VITAMINS
  2. VITAMIN D [Concomitant]
     Active Substance: CHOLECALCIFEROL
  3. VALSARTAN. [Concomitant]
     Active Substance: VALSARTAN
  4. NEXIUM [Concomitant]
     Active Substance: ESOMEPRAZOLE MAGNESIUM
  5. ALLEGRA [Concomitant]
     Active Substance: FEXOFENADINE HYDROCHLORIDE
  6. XOLAIR [Suspect]
     Active Substance: OMALIZUMAB
     Indication: ASTHMA
     Dosage: ?          QUANTITY:3 INJECTION(S);?
     Route: 030
     Dates: start: 20110501
  7. CPAP [Concomitant]
     Active Substance: DEVICE

REACTIONS (2)
  - Cardiomyopathy [None]
  - Arrhythmia [None]

NARRATIVE: CASE EVENT DATE: 20160803
